FAERS Safety Report 4388193-6 (Version None)
Quarter: 2004Q2

REPORT INFORMATION
  Report Type: 
  Country: None (occurrence: None)
  Receive Date: 20040629
  Receipt Date: 20040629
  Transmission Date: 20050107
  Serious: Yes (Other)
  Sender: FDA-Public Use
  Company Number: None

PATIENT
  Age: 64 Year
  Sex: Male
  Weight: 90.7194 kg

DRUGS (1)
  1. ELIDEL [Suspect]
     Dosage: AS NEEDED TWICE / DAY TOPICAL
     Route: 061
     Dates: start: 20040515, end: 20040615

REACTIONS (1)
  - DRUG INEFFECTIVE [None]
